FAERS Safety Report 20523964 (Version 1)
Quarter: 2022Q1

REPORT INFORMATION
  Report Type: Spontaneous
  Country: US (occurrence: US)
  Receive Date: 20220228
  Receipt Date: 20220228
  Transmission Date: 20220423
  Serious: Yes (Hospitalization, Other)
  Sender: FDA-Public Use
  Company Number: US-CADILA HEALTHCARE LIMITED-US-ZYDUS-075199

PATIENT

DRUGS (1)
  1. COLCHICINE [Suspect]
     Active Substance: COLCHICINE
     Indication: Euphoric mood
     Dosage: UNK
     Route: 065

REACTIONS (14)
  - Capillary leak syndrome [Unknown]
  - Vasoplegia syndrome [Unknown]
  - Abdominal compartment syndrome [Unknown]
  - Tachycardia [Unknown]
  - Bradycardia [Unknown]
  - Renal impairment [Unknown]
  - Liver function test abnormal [Unknown]
  - Hyperlactacidaemia [Unknown]
  - Myelosuppression [Unknown]
  - Fatigue [Unknown]
  - Diarrhoea [Unknown]
  - Vomiting [Unknown]
  - Intentional overdose [Unknown]
  - Drug abuse [Unknown]
